FAERS Safety Report 19062943 (Version 1)
Quarter: 2021Q1

REPORT INFORMATION
  Report Type: Spontaneous
  Country: US (occurrence: US)
  Receive Date: 20210326
  Receipt Date: 20210326
  Transmission Date: 20210420
  Serious: Yes (Life-Threatening)
  Sender: FDA-Public Use
  Company Number: None

PATIENT
  Age: 37 Year
  Sex: Female

DRUGS (4)
  1. DYSPORT [Suspect]
     Active Substance: ABOBOTULINUMTOXINA
     Indication: MIGRAINE
     Dosage: ?          QUANTITY:125 UNITS INJECTED;OTHER FREQUENCY:1 TIME INJECTION;?
     Route: 042
     Dates: start: 20210201, end: 20210201
  2. VALTREX [Concomitant]
     Active Substance: VALACYCLOVIR HYDROCHLORIDE
  3. DYSPORT [Suspect]
     Active Substance: ABOBOTULINUMTOXINA
     Indication: SKIN COSMETIC PROCEDURE
     Dosage: ?          QUANTITY:125 UNITS INJECTED;OTHER FREQUENCY:1 TIME INJECTION;?
     Route: 042
     Dates: start: 20210201, end: 20210201
  4. TIROSINT [Concomitant]
     Active Substance: LEVOTHYROXINE SODIUM

REACTIONS (23)
  - Tinnitus [None]
  - Blindness [None]
  - Hyperhidrosis [None]
  - Dyspnoea exertional [None]
  - Abdominal discomfort [None]
  - Visual impairment [None]
  - Cold sweat [None]
  - Neuropathy peripheral [None]
  - Confusional state [None]
  - Photophobia [None]
  - Tremor [None]
  - Feeling abnormal [None]
  - Anxiety [None]
  - Diarrhoea [None]
  - Asthenia [None]
  - Vertigo [None]
  - Weight decreased [None]
  - Thinking abnormal [None]
  - Blood pressure increased [None]
  - Fine motor skill dysfunction [None]
  - Heart rate increased [None]
  - Paraesthesia oral [None]
  - Tongue dry [None]

NARRATIVE: CASE EVENT DATE: 20210201
